FAERS Safety Report 7169260-0 (Version None)
Quarter: 2010Q4

REPORT INFORMATION
  Report Type: 
  Country: None (occurrence: None)
  Receive Date: 20101216
  Receipt Date: 20100108
  Transmission Date: 20110411
  Serious: No
  Sender: FDA-Public Use
  Company Number: US-AMGEN-KDL384422

PATIENT

DRUGS (3)
  1. ENBREL [Suspect]
     Indication: RHEUMATOID ARTHRITIS
     Dosage: UNK UNK, UNK
     Dates: start: 20070101
  2. HYDROXYCHLOROQUINE SULFATE [Concomitant]
     Dosage: UNK UNK, UNK
     Dates: start: 20070701
  3. METHOTREXATE [Concomitant]
     Dosage: UNK UNK, UNK
     Dates: start: 20091201

REACTIONS (2)
  - INJECTION SITE PAIN [None]
  - INJECTION SITE URTICARIA [None]
